FAERS Safety Report 24263587 (Version 1)
Quarter: 2024Q3

REPORT INFORMATION
  Report Type: Spontaneous
  Country: GT (occurrence: GT)
  Receive Date: 20240829
  Receipt Date: 20240829
  Transmission Date: 20241017
  Serious: Yes (Other)
  Sender: BAYER
  Company Number: GT-BAYER-2024A123853

PATIENT
  Age: 44 Year
  Sex: Female

DRUGS (1)
  1. DIENOGEST\ESTRADIOL VALERATE [Suspect]
     Active Substance: DIENOGEST\ESTRADIOL VALERATE
     Dosage: 1 DF, QD
     Route: 048

REACTIONS (4)
  - Pregnancy on oral contraceptive [Recovered/Resolved]
  - Abortion spontaneous [None]
  - Drug ineffective [None]
  - Emotional distress [Recovering/Resolving]
